FAERS Safety Report 25699360 (Version 1)
Quarter: 2025Q3

REPORT INFORMATION
  Report Type: Spontaneous
  Country: US (occurrence: US)
  Receive Date: 20250819
  Receipt Date: 20250819
  Transmission Date: 20251020
  Serious: No
  Sender: FDC LIMITED
  Company Number: US-FDC-2025USLIT00343

PATIENT
  Age: 71 Year
  Sex: Male

DRUGS (7)
  1. TIMOLOL MALEATE [Suspect]
     Active Substance: TIMOLOL MALEATE
     Indication: Intraocular pressure test abnormal
  2. LATANOPROST [Suspect]
     Active Substance: LATANOPROST
     Indication: Intraocular pressure test abnormal
  3. DORZOLAMIDE HYDROCHLORIDE\TIMOLOL MALEATE [Suspect]
     Active Substance: DORZOLAMIDE HYDROCHLORIDE\TIMOLOL MALEATE
     Indication: Intraocular pressure test abnormal
  4. NETARSUDIL [Suspect]
     Active Substance: NETARSUDIL
  5. LATANOPROST\NETARSUDIL MESYLATE [Suspect]
     Active Substance: LATANOPROST\NETARSUDIL MESYLATE
  6. BRIMONIDINE [Suspect]
     Active Substance: BRIMONIDINE TARTRATE
  7. TRAVOPROST [Suspect]
     Active Substance: TRAVOPROST

REACTIONS (2)
  - Intraocular pressure fluctuation [Recovered/Resolved]
  - Drug ineffective [Unknown]
